FAERS Safety Report 11775272 (Version 1)
Quarter: 2015Q4

REPORT INFORMATION
  Report Type: Report from Study
  Country: FR (occurrence: FR)
  Receive Date: 20151124
  Receipt Date: 20151124
  Transmission Date: 20160304
  Serious: Yes (Other)
  Sender: FDA-Public Use
  Company Number: FR-BRISTOL-MYERS SQUIBB COMPANY-BMS-2015-067587

PATIENT
  Age: 71 Year
  Sex: Female
  Weight: 40 kg

DRUGS (3)
  1. NIVOLUMAB [Suspect]
     Active Substance: NIVOLUMAB
     Indication: NON-SMALL CELL LUNG CANCER
     Dosage: 3 MG/KG, UNK
     Route: 042
     Dates: start: 20150825
  2. NIVOLUMAB [Suspect]
     Active Substance: NIVOLUMAB
     Dosage: 120 MG, UNK
     Route: 065
     Dates: start: 20151106
  3. NIVOLUMAB [Suspect]
     Active Substance: NIVOLUMAB
     Dosage: 120 MG, UNK
     Route: 065
     Dates: start: 20151021

REACTIONS (7)
  - Haemoglobin abnormal [Unknown]
  - Cell death [Unknown]
  - Creatinine renal clearance abnormal [Recovering/Resolving]
  - Blood bilirubin increased [Unknown]
  - Lymphocyte count decreased [Recovering/Resolving]
  - Cholestasis [Unknown]
  - Blood alkaline phosphatase abnormal [Unknown]

NARRATIVE: CASE EVENT DATE: 20150908
